FAERS Safety Report 13724860 (Version 1)
Quarter: 2017Q3

REPORT INFORMATION
  Report Type: Spontaneous
  Country: TJ (occurrence: TJ)
  Receive Date: 20170706
  Receipt Date: 20170706
  Transmission Date: 20171127
  Serious: Yes (Death, Other)
  Sender: FDA-Public Use
  Company Number: TJ-JNJFOC-20170703232

PATIENT
  Sex: Female
  Weight: 43 kg

DRUGS (8)
  1. PROTIONAMIDE [Suspect]
     Active Substance: PROTIONAMIDE
     Indication: TUBERCULOSIS
     Dosage: 0.5 UNITS
     Route: 048
     Dates: start: 20170603
  2. PYRAZINAMIDE. [Suspect]
     Active Substance: PYRAZINAMIDE
     Indication: TUBERCULOSIS
     Dosage: 1.2 UNITS
     Route: 048
     Dates: start: 20170517
  3. TMC207 [Suspect]
     Active Substance: BEDAQUILINE
     Indication: TUBERCULOSIS
     Route: 048
  4. TMC207 [Suspect]
     Active Substance: BEDAQUILINE
     Indication: TUBERCULOSIS
     Route: 048
     Dates: start: 20170517, end: 20170530
  5. PROTIONAMIDE [Suspect]
     Active Substance: PROTIONAMIDE
     Indication: TUBERCULOSIS
     Dosage: 0.75 UNITS
     Route: 048
     Dates: start: 20170517, end: 20170602
  6. LINEZOLID. [Suspect]
     Active Substance: LINEZOLID
     Indication: TUBERCULOSIS
     Dosage: 0.6 UNITS
     Route: 048
     Dates: start: 20170517, end: 20170603
  7. CLOFAZIMINE [Suspect]
     Active Substance: CLOFAZIMINE
     Indication: TUBERCULOSIS
     Dosage: 0.2 UNITS
     Route: 048
     Dates: start: 20170517
  8. CYCLOSERIN [Suspect]
     Active Substance: CYCLOSERINE
     Indication: TUBERCULOSIS
     Dosage: 0.5 UNITS
     Route: 048
     Dates: start: 20170517

REACTIONS (3)
  - General physical health deterioration [Unknown]
  - Death [Fatal]
  - Haemoglobin decreased [Recovering/Resolving]
